FAERS Safety Report 16036791 (Version 1)
Quarter: 2019Q1

REPORT INFORMATION
  Report Type: Spontaneous
  Country: US (occurrence: US)
  Receive Date: 20190206
  Receipt Date: 20190206
  Transmission Date: 20190418
  Serious: No
  Sender: FDA-Public Use
  Company Number: None

PATIENT
  Sex: Female

DRUGS (1)
  1. BIKTARVY [Suspect]
     Active Substance: BICTEGRAVIR SODIUM\EMTRICITABINE\TENOFOVIR ALAFENAMIDE FUMARATE
     Indication: HIV INFECTION
     Dosage: 50/200/25 MG, DAILY ORAL
     Route: 048
     Dates: start: 201804

REACTIONS (6)
  - Cardiovascular disorder [None]
  - Anxiety [None]
  - Pain in jaw [None]
  - Depression [None]
  - Hyperhidrosis [None]
  - Dyspnoea [None]
